FAERS Safety Report 7962084 (Version 3)
Quarter: 2017Q3

REPORT INFORMATION
  Report Type: Spontaneous
  Country: US (occurrence: US)
  Receive Date: 20110526
  Receipt Date: 20170927
  Transmission Date: 20171128
  Serious: Yes (Hospitalization, Other)
  Sender: FDA-Public Use
  Company Number: US-ROCHE-778588

PATIENT
  Age: 68 Year
  Sex: Female
  Weight: 62.6 kg

DRUGS (7)
  1. BONIVA [Suspect]
     Active Substance: IBANDRONATE SODIUM
     Indication: OSTEOPOROSIS
     Route: 048
     Dates: start: 20100225, end: 201012
  2. ALENDRONIC ACID [Suspect]
     Active Substance: ALENDRONIC ACID
     Indication: OSTEOPOROSIS
     Route: 065
     Dates: start: 2009, end: 2010
  3. LIPITOR [Concomitant]
     Active Substance: ATORVASTATIN CALCIUM
     Dosage: FREQUENCY: DAILY.
     Route: 048
  4. FOSAMAX [Suspect]
     Active Substance: ALENDRONATE SODIUM
     Indication: OSTEOPOROSIS
     Route: 048
     Dates: start: 2004, end: 2009
  5. LORAZEPAM. [Concomitant]
     Active Substance: LORAZEPAM
     Dosage: AS REQUIRED.
     Route: 048
  6. CHLORDIAZEPOXIDE HCL [Concomitant]
     Active Substance: CHLORDIAZEPOXIDE HYDROCHLORIDE
     Dosage: 1 ORAL 4 TIMES DAILY
     Route: 048
  7. NAPRELAN [Concomitant]
     Active Substance: NAPROXEN SODIUM
     Dosage: 375 MG TAB ER 24 HRS 2 ORAL DAILY.
     Route: 048

REACTIONS (5)
  - Depression [Unknown]
  - Anxiety [Unknown]
  - Femur fracture [Unknown]
  - Low turnover osteopathy [Unknown]
  - Emotional distress [Unknown]

NARRATIVE: CASE EVENT DATE: 20090528
